FAERS Safety Report 9728194 (Version 1)
Quarter: 2013Q4

REPORT INFORMATION
  Report Type: Spontaneous
  Country: US (occurrence: US)
  Receive Date: 20131204
  Receipt Date: 20131204
  Transmission Date: 20140711
  Serious: Yes (Other)
  Sender: FDA-Public Use
  Company Number: US-JNJFOC-20131116301

PATIENT
  Sex: 0

DRUGS (3)
  1. DOXORUBICIN HYDROCHLORIDE [Suspect]
     Indication: SARCOMA
     Route: 042
  2. IFOSFAMIDE [Suspect]
     Indication: SARCOMA
     Dosage: DOSE 6-8,000 MG/M2
     Route: 065
  3. MESNA [Concomitant]
     Indication: SARCOMA
     Route: 065

REACTIONS (2)
  - Wound infection [Unknown]
  - Off label use [Unknown]
